APPROVED DRUG PRODUCT: DOXEPIN HYDROCHLORIDE
Active Ingredient: DOXEPIN HYDROCHLORIDE
Strength: EQ 150MG BASE
Dosage Form/Route: CAPSULE;ORAL
Application: A211618 | Product #001 | TE Code: AB
Applicant: VELZEN PHARMA PVT LTD
Approved: Mar 1, 2021 | RLD: No | RS: No | Type: RX